FAERS Safety Report 9875954 (Version 1)
Quarter: 2014Q1

REPORT INFORMATION
  Report Type: Spontaneous
  Country: US (occurrence: None)
  Receive Date: 20140205
  Receipt Date: 20140205
  Transmission Date: 20141002
  Serious: Yes (Hospitalization)
  Sender: FDA-Public Use
  Company Number: None

PATIENT
  Age: 87 Year
  Sex: Female
  Weight: 68 kg

DRUGS (11)
  1. FERAHEME [Suspect]
     Indication: IRON DEFICIENCY ANAEMIA
     Route: 042
     Dates: start: 20131212, end: 20131212
  2. ASPIRIN [Concomitant]
  3. VITAMINS [Concomitant]
  4. INSULIN [Concomitant]
  5. LASIX [Concomitant]
  6. LEVOTHYROXINE [Concomitant]
  7. LISINOPRIL [Concomitant]
  8. METOPROLOL [Concomitant]
  9. NTG [Concomitant]
  10. PROTONIX [Concomitant]
  11. PRANDIN [Concomitant]

REACTIONS (6)
  - Chest pain [None]
  - Hyperhidrosis [None]
  - Nausea [None]
  - Palpitations [None]
  - Blood pressure decreased [None]
  - Pulse abnormal [None]
